FAERS Safety Report 5628487-7 (Version None)
Quarter: 2008Q1

REPORT INFORMATION
  Report Type: 
  Country: None (occurrence: None)
  Receive Date: 20080215
  Receipt Date: 20080206
  Transmission Date: 20080703
  Serious: Yes (Other)
  Sender: FDA-Public Use
  Company Number: US-PFIZER INC-2008008073

PATIENT
  Sex: Female
  Weight: 56.7 kg

DRUGS (4)
  1. CHANTIX [Suspect]
     Indication: SMOKING CESSATION THERAPY
     Dates: start: 20071217, end: 20071201
  2. TOPAMAX [Interacting]
     Indication: EPILEPSY
  3. TRAZODONE HCL [Concomitant]
  4. ATIVAN [Concomitant]

REACTIONS (9)
  - ACTIVITIES OF DAILY LIVING IMPAIRED [None]
  - DEPRESSION [None]
  - DRUG INTERACTION [None]
  - INFLUENZA LIKE ILLNESS [None]
  - MALAISE [None]
  - MIGRAINE [None]
  - NAUSEA [None]
  - TENSION HEADACHE [None]
  - VOMITING [None]
